FAERS Safety Report 8210600-9 (Version None)
Quarter: 2012Q1

REPORT INFORMATION
  Report Type: 
  Country: None (occurrence: None)
  Receive Date: 20120314
  Receipt Date: 20120313
  Transmission Date: 20120608
  Serious: No
  Sender: FDA-Public Use
  Company Number: US-PFIZER INC-2012066801

PATIENT
  Sex: Female

DRUGS (3)
  1. LYRICA [Suspect]
  2. LYRICA [Suspect]
     Indication: ORAL DISCOMFORT
     Dosage: UNK
     Dates: start: 20120312
  3. LYRICA [Suspect]
     Indication: BURNING SENSATION

REACTIONS (1)
  - SOMNOLENCE [None]
